FAERS Safety Report 6891549-0 (Version None)
Quarter: 2010Q3

REPORT INFORMATION
  Report Type: 
  Country: None (occurrence: None)
  Receive Date: 20100731
  Receipt Date: 20071004
  Transmission Date: 20110219
  Serious: No
  Sender: FDA-Public Use
  Company Number: US-PFIZER INC-2007048788

PATIENT
  Sex: Male
  Weight: 68.181 kg

DRUGS (3)
  1. NORVASC [Suspect]
     Indication: BLOOD PRESSURE MANAGEMENT
     Route: 048
     Dates: start: 20000101
  2. TOPROL-XL [Concomitant]
  3. VALSARTAN [Concomitant]

REACTIONS (1)
  - DRUG INEFFECTIVE [None]
